FAERS Safety Report 17213449 (Version 1)
Quarter: 2020Q1

REPORT INFORMATION
  Report Type: Spontaneous
  Country: US (occurrence: US)
  Receive Date: 20191227
  Receipt Date: 20191227
  Transmission Date: 20200409
  Serious: Yes (Life-Threatening)
  Sender: FDA-Public Use
  Company Number: None

PATIENT
  Age: 66 Year
  Sex: Male

DRUGS (2)
  1. LEUPROLIDE ACETATE. [Suspect]
     Active Substance: LEUPROLIDE ACETATE
     Dosage: ?          OTHER FREQUENCY:ONE TIME DOSE;?
     Route: 030
  2. INFLUENZA VACCINE (FLUZONE HIGH DOSE) [Concomitant]

REACTIONS (1)
  - Pulseless electrical activity [None]
